FAERS Safety Report 10153057 (Version 1)
Quarter: 2014Q2

REPORT INFORMATION
  Report Type: Spontaneous
  Country: US (occurrence: US)
  Receive Date: 20140505
  Receipt Date: 20140505
  Transmission Date: 20141212
  Serious: Yes (Other)
  Sender: FDA-Public Use
  Company Number: US-PFIZER INC-2014122665

PATIENT
  Age: 78 Year
  Sex: Female
  Weight: 83.9 kg

DRUGS (6)
  1. CELEBREX [Suspect]
     Indication: ARTHRITIS
     Dosage: 200 MG, 1X/DAY
     Route: 048
  2. CELEBREX [Suspect]
     Dosage: 200 MG, 2X/DAY (TAKING ONE IN THE MORNING AND ONE AT NIGHT)
     Route: 048
  3. SYNTHROID [Concomitant]
     Indication: HYPOTHYROIDISM
     Dosage: UNK
  4. CYMBALTA [Concomitant]
     Dosage: UNK
  5. ESTRADIOL [Concomitant]
     Dosage: 0.5 MG WHICH SHE MENTIONED WAS TAKING HALF TABLET
  6. PROMETHAZINE [Concomitant]
     Indication: HYPERSENSITIVITY
     Dosage: UNK

REACTIONS (2)
  - Intervertebral disc disorder [Unknown]
  - Vitamin B12 decreased [Unknown]
